FAERS Safety Report 13761194 (Version 1)
Quarter: 2017Q3

REPORT INFORMATION
  Report Type: Spontaneous
  Country: DE (occurrence: DE)
  Receive Date: 20170717
  Receipt Date: 20170717
  Transmission Date: 20171127
  Serious: Yes (Congenital Anomaly)
  Sender: FDA-Public Use
  Company Number: DE-BIOGEN-2017BI00431384

PATIENT
  Sex: Male

DRUGS (1)
  1. AVONEX [Suspect]
     Active Substance: INTERFERON BETA-1A
     Indication: MULTIPLE SCLEROSIS
     Route: 064
     Dates: start: 20130401, end: 201603

REACTIONS (3)
  - Pulmonary valve stenosis [Recovered/Resolved]
  - Foetal exposure timing unspecified [Recovered/Resolved]
  - Cardiac septal defect [Recovered/Resolved]
